FAERS Safety Report 20911122 (Version 1)
Quarter: 2022Q2

REPORT INFORMATION
  Report Type: Spontaneous
  Country: US (occurrence: None)
  Receive Date: 20220602
  Receipt Date: 20220602
  Transmission Date: 20220721
  Serious: Yes (Hospitalization)
  Sender: FDA-Public Use
  Company Number: None

PATIENT
  Age: 85 Year
  Sex: Female
  Weight: 52 kg

DRUGS (3)
  1. PAXLOVID [Suspect]
     Active Substance: NIRMATRELVIR\RITONAVIR
     Indication: COVID-19
     Route: 048
  2. PAXLOVID [Concomitant]
     Active Substance: NIRMATRELVIR\RITONAVIR
     Dates: start: 20220522, end: 20220522
  3. Verapamil 360 mg 24 hour [Concomitant]

REACTIONS (6)
  - Drug interaction [None]
  - Bradycardia [None]
  - Hypotension [None]
  - Acute kidney injury [None]
  - Hyperkalaemia [None]
  - Cardioactive drug level increased [None]

NARRATIVE: CASE EVENT DATE: 20220523
